FAERS Safety Report 9791990 (Version 7)
Quarter: 2015Q2

REPORT INFORMATION
  Report Type: Spontaneous
  Country: US (occurrence: US)
  Receive Date: 20140102
  Receipt Date: 20150408
  Transmission Date: 20150821
  Serious: Yes (Hospitalization, Other)
  Sender: FDA-Public Use
  Company Number: US-009507513-1312USA011701

PATIENT
  Sex: Female
  Weight: 67.12 kg

DRUGS (8)
  1. CALCIUM (UNSPECIFIED) [Concomitant]
     Active Substance: CALCIUM
     Indication: OSTEOPOROSIS
     Dosage: 600 MG, BID
     Dates: start: 1998
  2. CHOLECALCIFEROL [Concomitant]
     Active Substance: CHOLECALCIFEROL
     Indication: OSTEOPOROSIS
     Dosage: 6000 IU, QW
     Route: 048
     Dates: start: 1998
  3. EVISTA [Concomitant]
     Active Substance: RALOXIFENE HYDROCHLORIDE
     Indication: OSTEOPENIA
  4. FOSAMAX [Suspect]
     Active Substance: ALENDRONATE SODIUM
     Indication: OSTEOPENIA
     Dosage: 70 MG, UNK
     Route: 048
  5. FOSAMAX [Suspect]
     Active Substance: ALENDRONATE SODIUM
     Indication: OSTEOPOROSIS
     Dosage: 70 MG UNK
     Route: 048
     Dates: start: 20041104, end: 20111115
  6. BONIVA [Suspect]
     Active Substance: IBANDRONATE SODIUM
     Indication: OSTEOPOROSIS
     Dosage: 150 MG, UNK
     Dates: start: 201010, end: 201110
  7. ALENDRONATE SODIUM. [Suspect]
     Active Substance: ALENDRONATE SODIUM
     Indication: OSTEOPOROSIS
     Dosage: 70 MG, UNK
     Route: 048
     Dates: start: 20080425, end: 200901
  8. VITAMINS (UNSPECIFIED) [Concomitant]
     Active Substance: VITAMINS
     Dosage: UNK
     Dates: start: 1998

REACTIONS (37)
  - Myomectomy [Unknown]
  - Anxiety [Unknown]
  - Arthritis [Unknown]
  - Rotator cuff syndrome [Unknown]
  - Gastrooesophageal reflux disease [Unknown]
  - Thyroid disorder [Unknown]
  - Hypertension [Unknown]
  - Blood potassium abnormal [Unknown]
  - Sinusitis [Unknown]
  - Necrosis [Unknown]
  - Headache [Unknown]
  - Meningioma [Unknown]
  - Tooth fracture [Unknown]
  - Back pain [Not Recovered/Not Resolved]
  - Arthralgia [Not Recovered/Not Resolved]
  - Thyroidectomy [Unknown]
  - Femur fracture [Recovering/Resolving]
  - Dry eye [Unknown]
  - Intramedullary rod insertion [Unknown]
  - Foot fracture [Unknown]
  - Adverse event [Unknown]
  - Temporomandibular joint syndrome [Unknown]
  - Cough [Unknown]
  - Nausea [Unknown]
  - Femur fracture [Recovering/Resolving]
  - Tooth fracture [Unknown]
  - Low turnover osteopathy [Unknown]
  - Hyperlipidaemia [Unknown]
  - Rosacea [Unknown]
  - Endodontic procedure [Unknown]
  - Hot flush [Unknown]
  - Vitamin D deficiency [Unknown]
  - Bruxism [Unknown]
  - Osteonecrosis [Unknown]
  - Ocular hyperaemia [Unknown]
  - Dysphonia [Unknown]
  - Pain in jaw [Unknown]

NARRATIVE: CASE EVENT DATE: 2002
